FAERS Safety Report 9641878 (Version 4)
Quarter: 2014Q1

REPORT INFORMATION
  Report Type: Spontaneous
  Country: CA (occurrence: None)
  Receive Date: 20131021
  Receipt Date: 20140116
  Transmission Date: 20141002
  Serious: Yes (Other)
  Sender: FDA-Public Use
  Company Number: A1045753A

PATIENT
  Age: 64 Year
  Sex: Male

DRUGS (1)
  1. SODIUM FLUORIDE + POTASSIUM NITRATE [Suspect]
     Indication: PRODUCT USED FOR UNKNOWN INDICATION
     Route: 004
     Dates: start: 20130128, end: 20130601

REACTIONS (6)
  - Tooth infection [None]
  - Oral pain [None]
  - Gingival pain [None]
  - Gingivitis [None]
  - Dental caries [None]
  - Toothache [None]
